FAERS Safety Report 9383920 (Version 2)
Quarter: 2013Q3

REPORT INFORMATION
  Report Type: Spontaneous
  Country: GB (occurrence: GB)
  Receive Date: 20130705
  Receipt Date: 20130711
  Transmission Date: 20140515
  Serious: Yes (Other)
  Sender: FDA-Public Use
  Company Number: GB-ROCHE-1238235

PATIENT
  Sex: Male

DRUGS (16)
  1. MIRCERA [Suspect]
     Indication: PRODUCT USED FOR UNKNOWN INDICATION
     Dosage: LAST DOSE OF MICERA : 15/MAY/2013
     Route: 058
  2. MIRCERA [Suspect]
     Route: 058
     Dates: start: 20101222, end: 20110207
  3. MIRCERA [Suspect]
     Route: 058
     Dates: start: 20110407, end: 20110407
  4. MIRCERA [Suspect]
     Route: 058
     Dates: start: 20110407, end: 20110707
  5. MIRCERA [Suspect]
     Route: 058
     Dates: start: 20110707, end: 20111109
  6. MIRCERA [Suspect]
     Route: 058
     Dates: start: 20111109, end: 20120111
  7. MIRCERA [Suspect]
     Route: 058
     Dates: start: 20120111, end: 20120208
  8. MIRCERA [Suspect]
     Route: 058
     Dates: start: 20120208, end: 20120404
  9. MIRCERA [Suspect]
     Route: 058
     Dates: start: 20120404, end: 20120620
  10. MIRCERA [Suspect]
     Dosage: FOR NIGHTLY
     Route: 058
     Dates: start: 20120620, end: 20120822
  11. MIRCERA [Suspect]
     Route: 058
     Dates: start: 20120822, end: 20121108
  12. MIRCERA [Suspect]
     Route: 058
     Dates: start: 20121108, end: 20121121
  13. MIRCERA [Suspect]
     Route: 058
     Dates: start: 20121121, end: 20121221
  14. MIRCERA [Suspect]
     Route: 058
     Dates: start: 20121221, end: 20130122
  15. MIRCERA [Suspect]
     Route: 058
     Dates: start: 20130122, end: 20130611
  16. ARANESP [Concomitant]
     Route: 042
     Dates: start: 20130611

REACTIONS (2)
  - Drug specific antibody present [Unknown]
  - Therapeutic response decreased [Unknown]
